FAERS Safety Report 6294910-0 (Version None)
Quarter: 2009Q3

REPORT INFORMATION
  Report Type: 
  Country: None (occurrence: None)
  Receive Date: 20090731
  Receipt Date: 20090731
  Transmission Date: 20100115
  Serious: Yes (Other)
  Sender: FDA-Public Use
  Company Number: None

PATIENT
  Age: 69 Year
  Sex: Female
  Weight: 58.514 kg

DRUGS (2)
  1. ACETAMINOPHEN AND TRAMADOL HCL [Suspect]
     Indication: ARTHRITIS
     Dosage: 1 EVERY 4 HRS BUCCAL
     Route: 002
     Dates: start: 20090730, end: 20090730
  2. ACETAMINOPHEN AND TRAMADOL HCL [Suspect]
     Indication: MYALGIA
     Dosage: 1 EVERY 4 HRS BUCCAL
     Route: 002
     Dates: start: 20090730, end: 20090730

REACTIONS (2)
  - CHEST DISCOMFORT [None]
  - VOMITING [None]
